FAERS Safety Report 12984276 (Version 2)
Quarter: 2016Q4

REPORT INFORMATION
  Report Type: Spontaneous
  Country: US (occurrence: US)
  Receive Date: 20161129
  Receipt Date: 20161129
  Transmission Date: 20170207
  Serious: No
  Sender: FDA-Public Use
  Company Number: US-CIPLA LTD.-2016US07045

PATIENT

DRUGS (8)
  1. DIAZEPAM. [Concomitant]
     Active Substance: DIAZEPAM
     Dosage: 5 MG, BID
     Route: 065
  2. VITAMIN B12 [Concomitant]
     Active Substance: CYANOCOBALAMIN
     Dosage: UNK
     Route: 065
  3. ASPIRIN. [Concomitant]
     Active Substance: ASPIRIN
     Dosage: 81 MG, PRN
     Route: 065
  4. METFORMIN HYDROCHLORIDE. [Concomitant]
     Active Substance: METFORMIN HYDROCHLORIDE
     Dosage: 500 MG, QID
     Route: 065
  5. VITAMIN D3 [Concomitant]
     Active Substance: CHOLECALCIFEROL
     Dosage: UNK
     Route: 065
  6. SYNTHROID [Concomitant]
     Active Substance: LEVOTHYROXINE SODIUM
     Dosage: 100 MCG, QD
     Route: 065
  7. CITALOPRAM [Suspect]
     Active Substance: CITALOPRAM HYDROBROMIDE
     Indication: ANXIETY
     Dosage: 40 MG, QD
     Route: 048
     Dates: start: 201506
  8. NIFEDIPINE. [Concomitant]
     Active Substance: NIFEDIPINE
     Dosage: 30 MG, QD
     Route: 065

REACTIONS (2)
  - Anxiety [Not Recovered/Not Resolved]
  - Drug ineffective [Not Recovered/Not Resolved]

NARRATIVE: CASE EVENT DATE: 20151029
